FAERS Safety Report 10611289 (Version 12)
Quarter: 2015Q4

REPORT INFORMATION
  Report Type: Report from Study
  Country: CA (occurrence: CA)
  Receive Date: 20141126
  Receipt Date: 20151102
  Transmission Date: 20160304
  Serious: Yes (Other)
  Sender: FDA-Public Use
  Company Number: PHHY2013CA109298

PATIENT
  Age: 53 Year
  Sex: Female

DRUGS (8)
  1. GLEEVEC [Suspect]
     Active Substance: IMATINIB MESYLATE
     Dosage: 200 MG, QD
     Route: 048
  2. OMEGA 3 [Concomitant]
     Active Substance: OMEGA-3 FATTY ACIDS
     Indication: SPEECH DISORDER
  3. GLEEVEC [Suspect]
     Active Substance: IMATINIB MESYLATE
     Indication: GASTROINTESTINAL STROMAL TUMOUR
     Dosage: 400 MG, QD
     Route: 048
     Dates: start: 20130926, end: 201501
  4. GLEEVEC [Suspect]
     Active Substance: IMATINIB MESYLATE
     Dosage: 200 MG, QD
     Route: 048
  5. EFFEXOR [Concomitant]
     Active Substance: VENLAFAXINE HYDROCHLORIDE
     Indication: PRODUCT USED FOR UNKNOWN INDICATION
     Route: 065
  6. OMEGA 3 [Concomitant]
     Active Substance: OMEGA-3 FATTY ACIDS
     Indication: MYALGIA
     Route: 065
  7. BETAHISTINE [Concomitant]
     Active Substance: BETAHISTINE
     Indication: DIZZINESS
     Route: 065
  8. APO PROCHLORPERAZINE [Concomitant]
     Indication: PRODUCT USED FOR UNKNOWN INDICATION
     Route: 065

REACTIONS (63)
  - Asthenia [Unknown]
  - Nasal pruritus [Unknown]
  - Flatulence [Unknown]
  - Vomiting [Unknown]
  - Dysphagia [Not Recovered/Not Resolved]
  - Gastrooesophageal reflux disease [Not Recovered/Not Resolved]
  - Dyspepsia [Unknown]
  - Hypersensitivity [Unknown]
  - Rhinorrhoea [Unknown]
  - Dizziness [Not Recovered/Not Resolved]
  - Eye haemorrhage [Recovering/Resolving]
  - Dry eye [Unknown]
  - Benign neoplasm of thyroid gland [Unknown]
  - Blood iron decreased [Unknown]
  - Incision site pain [Unknown]
  - Oesophageal discomfort [Unknown]
  - Feeling abnormal [Recovering/Resolving]
  - Pain [Unknown]
  - Pollakiuria [Unknown]
  - Alopecia [Recovering/Resolving]
  - Diarrhoea [Unknown]
  - Gastrointestinal pain [Unknown]
  - Fatigue [Recovering/Resolving]
  - Muscle spasms [Recovering/Resolving]
  - Cough [Not Recovered/Not Resolved]
  - Oropharyngeal pain [Not Recovered/Not Resolved]
  - Wrong technique in product usage process [Unknown]
  - Keloid scar [Recovering/Resolving]
  - Incision site swelling [Unknown]
  - Micturition urgency [Unknown]
  - Sputum discoloured [Unknown]
  - Pyrexia [Unknown]
  - Abdominal distension [Unknown]
  - Weight increased [Unknown]
  - Hypersomnia [Unknown]
  - Dehydration [Unknown]
  - Memory impairment [Not Recovered/Not Resolved]
  - Incision site erythema [Unknown]
  - Poor quality sleep [Unknown]
  - Back pain [Unknown]
  - Haemoglobin decreased [Unknown]
  - Pruritus [Unknown]
  - Abdominal pain [Unknown]
  - Arthritis [Unknown]
  - Confusional state [Unknown]
  - Malaise [Unknown]
  - Odynophagia [Not Recovered/Not Resolved]
  - Cognitive disorder [Unknown]
  - Somnolence [Unknown]
  - Gastrointestinal motility disorder [Unknown]
  - Contusion [Unknown]
  - Swelling face [Unknown]
  - Chills [Unknown]
  - Speech disorder [Not Recovered/Not Resolved]
  - Secretion discharge [Unknown]
  - Blood cholesterol increased [Unknown]
  - Eye pruritus [Unknown]
  - Nausea [Not Recovered/Not Resolved]
  - Constipation [Unknown]
  - Chest pain [Unknown]
  - Arthralgia [Not Recovered/Not Resolved]
  - Headache [Unknown]
  - Dyspnoea [Recovering/Resolving]

NARRATIVE: CASE EVENT DATE: 20140602
